FAERS Safety Report 6162473-6 (Version None)
Quarter: 2009Q2

REPORT INFORMATION
  Report Type: 
  Country: None (occurrence: None)
  Receive Date: 20090421
  Receipt Date: 20090416
  Transmission Date: 20091009
  Serious: Yes (Other)
  Sender: FDA-Public Use
  Company Number: PHEH2007US15441

PATIENT
  Sex: Female

DRUGS (4)
  1. ZOMETA [Suspect]
     Dosage: UNK
     Route: 042
  2. CHEMOTHERAPEUTICS NOS [Concomitant]
  3. RADIATION THERAPY [Concomitant]
  4. SYNTHROID [Concomitant]

REACTIONS (12)
  - ANHEDONIA [None]
  - ANXIETY [None]
  - ASCITES [None]
  - BONE DISORDER [None]
  - HYPOAESTHESIA [None]
  - INJURY [None]
  - METASTASES TO BONE [None]
  - METASTASES TO LIVER [None]
  - OSTEONECROSIS [None]
  - PAIN [None]
  - PARAESTHESIA ORAL [None]
  - TOOTH EXTRACTION [None]
